FAERS Safety Report 14556207 (Version 1)
Quarter: 2018Q1

REPORT INFORMATION
  Report Type: Spontaneous
  Country: IT (occurrence: IT)
  Receive Date: 20180221
  Receipt Date: 20180221
  Transmission Date: 20180509
  Serious: Yes (Other)
  Sender: FDA-Public Use
  Company Number: IT-SUN PHARMACEUTICAL INDUSTRIES LTD-2018RR-163934

PATIENT
  Age: 55 Year
  Sex: Female

DRUGS (6)
  1. NEORECORMON 30.000 IU SOLUTION FOR INJECTION IN PRE-FILLED SYRINGE [Concomitant]
     Indication: PRODUCT USED FOR UNKNOWN INDICATION
     Dosage: 1 DF, UNK
     Route: 058
  2. RANITIDINE. [Suspect]
     Active Substance: RANITIDINE
     Indication: ABDOMINAL PAIN UPPER
     Dosage: 300 MG, QD
     Route: 048
     Dates: start: 20151107, end: 20151114
  3. VIEKIRAX [Concomitant]
     Active Substance: OMBITASVIR\PARITAPREVIR\RITONAVIR
     Indication: PRODUCT USED FOR UNKNOWN INDICATION
     Route: 065
  4. AMOXICILLIN. [Concomitant]
     Active Substance: AMOXICILLIN
     Indication: PRODUCT USED FOR UNKNOWN INDICATION
     Route: 065
  5. RIBAVIRIN. [Concomitant]
     Active Substance: RIBAVIRIN
     Indication: PRODUCT USED FOR UNKNOWN INDICATION
     Route: 065
  6. EUTIROX [Concomitant]
     Active Substance: LEVOTHYROXINE SODIUM
     Indication: PRODUCT USED FOR UNKNOWN INDICATION
     Dosage: 75 ?G, UNK
     Route: 065

REACTIONS (5)
  - Drug ineffective [Recovering/Resolving]
  - Paraesthesia [Recovering/Resolving]
  - Vomiting [Recovering/Resolving]
  - Abdominal pain upper [Recovering/Resolving]
  - Nausea [Recovering/Resolving]

NARRATIVE: CASE EVENT DATE: 20151114
